FAERS Safety Report 6622126-4 (Version None)
Quarter: 2010Q1

REPORT INFORMATION
  Report Type: 
  Country: None (occurrence: None)
  Receive Date: 20100303
  Receipt Date: 20100218
  Transmission Date: 20100710
  Serious: No
  Sender: FDA-Public Use
  Company Number: CLOF-1000786

PATIENT
  Age: 64 Year
  Sex: Female
  Weight: 92 kg

DRUGS (4)
  1. EVOLTRA (CLOFARABINE) SOLUTION FOR INFUSION [Suspect]
     Indication: ACUTE MYELOID LEUKAEMIA
     Dosage: INTRAVENOUS
     Route: 042
     Dates: start: 20091125, end: 20091129
  2. BACTRIM [Suspect]
     Indication: PROPHYLAXIS
     Dosage: 400 MG, QD
     Dates: start: 20091125, end: 20091204
  3. VALACYCLOVIR HCL [Concomitant]
  4. NOXAFIL [Concomitant]

REACTIONS (1)
  - DRUG HYPERSENSITIVITY [None]
